FAERS Safety Report 7071527-1 (Version None)
Quarter: 2010Q4

REPORT INFORMATION
  Report Type: 
  Country: None (occurrence: None)
  Receive Date: 20101029
  Receipt Date: 20091012
  Transmission Date: 20110411
  Serious: No
  Sender: FDA-Public Use
  Company Number: A0807855A

PATIENT
  Age: 99 Year
  Sex: Female

DRUGS (1)
  1. ADVAIR DISKUS 100/50 [Suspect]
     Route: 055
     Dates: start: 20090814

REACTIONS (2)
  - MEDICATION RESIDUE [None]
  - STOMATITIS [None]
